FAERS Safety Report 6371299-X (Version None)
Quarter: 2009Q3

REPORT INFORMATION
  Report Type: 
  Country: None (occurrence: None)
  Receive Date: 20090923
  Receipt Date: 20090921
  Transmission Date: 20100115
  Serious: Yes (Hospitalization)
  Sender: FDA-Public Use
  Company Number: US-TEVA-209889USA

PATIENT
  Age: 68 Year
  Sex: Female

DRUGS (2)
  1. PROBENECID [Suspect]
     Dosage: FOUR TIMES DAILY FOR 15 DAYS
     Route: 048
  2. OSELTAMIVIR [Suspect]
     Route: 048

REACTIONS (1)
  - THROMBOCYTOPENIA [None]
